FAERS Safety Report 5128158-X (Version None)
Quarter: 2006Q4

REPORT INFORMATION
  Report Type: 
  Country: None (occurrence: None)
  Receive Date: 20061017
  Receipt Date: 20060921
  Transmission Date: 20070319
  Serious: Yes (Other)
  Sender: FDA-Public Use
  Company Number: US-BAYER-200614061BCC

PATIENT
  Sex: Male

DRUGS (1)
  1. ASPIRIN [Suspect]
     Indication: PROPHYLAXIS
     Route: 048

REACTIONS (4)
  - BLADDER CANCER STAGE IV [None]
  - HAEMATURIA [None]
  - URETHRAL OBSTRUCTION [None]
  - URINARY RETENTION [None]
